FAERS Safety Report 7443082-5 (Version None)
Quarter: 2011Q2

REPORT INFORMATION
  Report Type: 
  Country: None (occurrence: None)
  Receive Date: 20110428
  Receipt Date: 20110419
  Transmission Date: 20111010
  Serious: Yes (Hospitalization)
  Sender: FDA-Public Use
  Company Number: IT-ELI_LILLY_AND_COMPANY-IT201103002476

PATIENT
  Sex: Male

DRUGS (6)
  1. CONCOR [Concomitant]
     Dosage: 5 MG, UNKNOWN
     Route: 048
  2. EFFIENT [Suspect]
     Indication: STENT PLACEMENT
     Dosage: 5 MG, DAILY (1/D)
     Route: 048
     Dates: start: 20110222
  3. RAMIPRIL [Concomitant]
     Indication: ESSENTIAL HYPERTENSION
     Dosage: 2.5 MG, DAILY (1/D)
     Route: 048
     Dates: start: 20110223, end: 20110301
  4. SIMVASTATIN [Concomitant]
     Dosage: UNK, UNKNOWN
     Route: 048
  5. SUGUAN [Concomitant]
     Dosage: 1 GR, UNK
     Route: 048
  6. ULTRAVIST 150 [Concomitant]
     Dosage: 80 ML/TOTAL, UNK
     Route: 022
     Dates: start: 20110225, end: 20110225

REACTIONS (1)
  - HYPERSENSITIVITY [None]
